FAERS Safety Report 18081452 (Version 1)
Quarter: 2020Q3

REPORT INFORMATION
  Report Type: Spontaneous
  Country: FR (occurrence: FR)
  Receive Date: 20200728
  Receipt Date: 20200728
  Transmission Date: 20201103
  Serious: Yes (Hospitalization)
  Sender: FDA-Public Use
  Company Number: NVSC2020FR204336

PATIENT
  Age: 62 Year
  Sex: Male
  Weight: 78 kg

DRUGS (2)
  1. LEVOFLOXACIN. [Suspect]
     Active Substance: LEVOFLOXACIN
     Indication: INFECTION
     Dosage: 1000 MG, QD
     Route: 048
     Dates: start: 20200626, end: 20200628
  2. ZOPHREN [Suspect]
     Active Substance: ONDANSETRON
     Indication: NAUSEA
     Dosage: NC
     Route: 048
     Dates: start: 20200627, end: 20200629

REACTIONS (3)
  - Nightmare [Recovered/Resolved]
  - Suicidal ideation [Recovered/Resolved]
  - Anxiety [Recovered/Resolved]

NARRATIVE: CASE EVENT DATE: 20200627
